FAERS Safety Report 6199256-7 (Version None)
Quarter: 2009Q2

REPORT INFORMATION
  Report Type: 
  Country: None (occurrence: None)
  Receive Date: 20090519
  Receipt Date: 20090513
  Transmission Date: 20091009
  Serious: Yes (Other)
  Sender: FDA-Public Use
  Company Number: 2009005198

PATIENT

DRUGS (4)
  1. TRISENOX [Suspect]
     Indication: MYELODYSPLASTIC SYNDROME
     Dosage: INTRAVENOUS DRIP
     Route: 041
  2. FILGRASTIM       (FILGRASTIM) [Suspect]
     Indication: MYELODYSPLASTIC SYNDROME
  3. ERYTHROPOIETIN    (ERYTHROPOIETIN) [Suspect]
     Indication: MYELODYSPLASTIC SYNDROME
  4. ASCORBIC ACID [Concomitant]

REACTIONS (1)
  - SUBDURAL HAEMORRHAGE [None]
